FAERS Safety Report 17741330 (Version 1)
Quarter: 2020Q2

REPORT INFORMATION
  Report Type: Spontaneous
  Country: EG (occurrence: EG)
  Receive Date: 20200504
  Receipt Date: 20200504
  Transmission Date: 20200714
  Serious: Yes (Other)
  Sender: FDA-Public Use
  Company Number: EG-SA-2020SA113796

PATIENT
  Age: 62 Year
  Sex: Female

DRUGS (2)
  1. VILDAGLIPTIN [Suspect]
     Active Substance: VILDAGLIPTIN
     Indication: DIABETES MELLITUS
     Dosage: UNK
     Route: 065
  2. AMARYL [Suspect]
     Active Substance: GLIMEPIRIDE
     Indication: DIABETES MELLITUS
     Route: 065

REACTIONS (7)
  - Blood glucose decreased [Unknown]
  - Limb discomfort [Unknown]
  - Pain of skin [Unknown]
  - Blood glucose increased [Unknown]
  - Pain in extremity [Unknown]
  - Cellulitis [Unknown]
  - Pruritus [Unknown]
